FAERS Safety Report 9648447 (Version 1)
Quarter: 2013Q4

REPORT INFORMATION
  Report Type: Spontaneous
  Country: US (occurrence: None)
  Receive Date: 20131025
  Receipt Date: 20131025
  Transmission Date: 20140711
  Serious: Yes (Death, Hospitalization)
  Sender: FDA-Public Use
  Company Number: None

PATIENT
  Age: 84 Year
  Sex: Male

DRUGS (7)
  1. AMIODARONE [Suspect]
     Indication: ATRIAL FIBRILLATION
     Route: 048
     Dates: end: 201205
  2. OMEPRAZOLE [Concomitant]
  3. METOPROLOL TARTRATE [Concomitant]
  4. WARFARIN [Concomitant]
  5. CYMBALTA [Concomitant]
  6. B 12 SUBLINGUAL [Concomitant]
  7. B COMPLEX [Concomitant]

REACTIONS (5)
  - Chest pain [None]
  - Chest discomfort [None]
  - Gait disturbance [None]
  - Asthenia [None]
  - Disorientation [None]
